FAERS Safety Report 5941194-6 (Version None)
Quarter: 2008Q4

REPORT INFORMATION
  Report Type: 
  Country: None (occurrence: None)
  Receive Date: 20081104
  Receipt Date: 20081024
  Transmission Date: 20090506
  Serious: Yes (Other)
  Sender: FDA-Public Use
  Company Number: US-PFIZER INC-2008089500

PATIENT
  Age: 65 Year
  Sex: Female

DRUGS (4)
  1. GEODON [Suspect]
     Indication: BIPOLAR DISORDER
     Route: 048
     Dates: end: 20080901
  2. GEODON [Suspect]
  3. NEURONTIN [Suspect]
     Indication: BIPOLAR DISORDER
     Dosage: DAILY DOSE:900MG
     Route: 048
     Dates: end: 20080901
  4. LAMICTAL [Suspect]
     Indication: BIPOLAR DISORDER
     Dosage: DAILY DOSE:100MG
     Route: 048
     Dates: start: 20080101, end: 20080901

REACTIONS (2)
  - HEART RATE DECREASED [None]
  - SYNCOPE [None]
